FAERS Safety Report 18794419 (Version 1)
Quarter: 2021Q1

REPORT INFORMATION
  Report Type: Report from Study
  Country: CA (occurrence: CA)
  Receive Date: 20210127
  Receipt Date: 20210127
  Transmission Date: 20210419
  Serious: Yes (Other)
  Sender: FDA-Public Use
  Company Number: CA-PFIZER INC-2021050472

PATIENT
  Age: 53 Year
  Sex: Female
  Weight: 104 kg

DRUGS (10)
  1. TRASTUZUMAB. [Suspect]
     Active Substance: TRASTUZUMAB
     Indication: HER2 POSITIVE BREAST CANCER
     Dosage: UNK
     Route: 042
  2. DOXYCYCLINE. [Concomitant]
     Active Substance: DOXYCYCLINE
     Dosage: 100 MG, 2X/DAY
  3. TYLENOL [Concomitant]
     Active Substance: ACETAMINOPHEN
     Dosage: UNK
  4. TAXOL [Concomitant]
     Active Substance: PACLITAXEL
     Indication: BREAST CANCER
     Dosage: UNK
  5. PERJETA [Suspect]
     Active Substance: PERTUZUMAB
     Indication: HER2 POSITIVE BREAST CANCER
     Dosage: UNK
     Route: 042
  6. ADVIL [Concomitant]
     Active Substance: IBUPROFEN
     Dosage: UNK
  7. CALCIUM [Concomitant]
     Active Substance: CALCIUM
     Dosage: UNK
     Route: 048
  8. METFORMIN [Concomitant]
     Active Substance: METFORMIN HYDROCHLORIDE
     Indication: DIABETES MELLITUS
     Dosage: 500 MG, 2X/DAY
     Route: 048
  9. KADCYLA [Suspect]
     Active Substance: ADO-TRASTUZUMAB EMTANSINE
     Indication: HER2 POSITIVE BREAST CANCER
     Dosage: 379 MG, 1 EVERY 3 WEEKS
     Route: 042
  10. KADCYLA [Suspect]
     Active Substance: ADO-TRASTUZUMAB EMTANSINE
     Indication: HER2 POSITIVE BREAST CANCER
     Route: 042

REACTIONS (5)
  - Disease progression [Unknown]
  - Toxicity to various agents [Unknown]
  - Blood pressure systolic increased [Unknown]
  - Neuropathy peripheral [Unknown]
  - Fall [Unknown]
